FAERS Safety Report 13440968 (Version 1)
Quarter: 2017Q2

REPORT INFORMATION
  Report Type: Spontaneous
  Country: FR (occurrence: FR)
  Receive Date: 20170413
  Receipt Date: 20170413
  Transmission Date: 20170830
  Serious: Yes (Hospitalization, Congenital Anomaly)
  Sender: FDA-Public Use
  Company Number: FR-ABBVIE-17P-056-1943906-00

PATIENT
  Sex: Female

DRUGS (5)
  1. BIPRETERAX (INDAPAMIDE/PERINDOPRIL ERBUMINE) [Suspect]
     Active Substance: INDAPAMIDE\PERINDOPRIL
     Indication: MATERNAL EXPOSURE TIMING UNSPECIFIED
     Route: 064
  2. KARDEGIC [Suspect]
     Active Substance: ASPIRIN LYSINE
     Indication: MATERNAL EXPOSURE TIMING UNSPECIFIED
     Route: 064
  3. CYMBALTA [Suspect]
     Active Substance: DULOXETINE HYDROCHLORIDE
     Indication: MATERNAL EXPOSURE TIMING UNSPECIFIED
     Route: 064
  4. DEPAKOTE [Suspect]
     Active Substance: DIVALPROEX SODIUM
     Indication: MATERNAL EXPOSURE TIMING UNSPECIFIED
     Route: 064
  5. SERESTA (OXAZEPAM) [Suspect]
     Active Substance: OXAZEPAM
     Indication: MATERNAL EXPOSURE TIMING UNSPECIFIED
     Route: 064

REACTIONS (3)
  - Pulmonary artery stenosis [Not Recovered/Not Resolved]
  - Foetal growth restriction [Not Recovered/Not Resolved]
  - Foetal exposure during pregnancy [Unknown]
